FAERS Safety Report 6975821-1 (Version None)
Quarter: 2010Q3

REPORT INFORMATION
  Report Type: 
  Country: None (occurrence: None)
  Receive Date: 20100910
  Receipt Date: 20100902
  Transmission Date: 20110219
  Serious: Yes (Hospitalization)
  Sender: FDA-Public Use
  Company Number: US-ELI_LILLY_AND_COMPANY-US201009000890

PATIENT
  Age: 55 Year
  Sex: Male
  Weight: 119.73 kg

DRUGS (4)
  1. BYETTA [Suspect]
     Indication: TYPE 2 DIABETES MELLITUS
     Dosage: 5 UG, 2/D
     Route: 058
     Dates: start: 20090929
  2. BYETTA [Suspect]
     Dosage: 10 UG, 2/D
     Route: 058
  3. ACTOS [Concomitant]
     Dosage: 30 MG, DAILY (1/D)
     Route: 048
     Dates: end: 20100521
  4. GLUCOVANCE [Concomitant]
     Dosage: UNK, UNKNOWN
     Route: 065

REACTIONS (3)
  - CONGESTIVE CARDIOMYOPATHY [None]
  - PNEUMONIA [None]
  - WEIGHT DECREASED [None]
